FAERS Safety Report 6215023-X (Version None)
Quarter: 2009Q2

REPORT INFORMATION
  Report Type: 
  Country: None (occurrence: None)
  Receive Date: 20090604
  Receipt Date: 20081104
  Transmission Date: 20091009
  Serious: No
  Sender: FDA-Public Use
  Company Number: US-ASTRAZENECA-2008UW20630

PATIENT
  Age: 68 Year
  Sex: Female
  Weight: 108.9 kg

DRUGS (6)
  1. PRILOSEC [Suspect]
     Indication: HIATUS HERNIA
     Route: 048
     Dates: start: 19830101
  2. LEVOXYL [Concomitant]
  3. AMARYL [Concomitant]
  4. VASOTEC [Concomitant]
  5. ZIAC [Concomitant]
  6. JANUVIA [Concomitant]

REACTIONS (5)
  - CHOKING SENSATION [None]
  - DRUG INEFFECTIVE [None]
  - DYSPHAGIA [None]
  - REMOVAL OF FOREIGN BODY FROM THROAT [None]
  - THROAT IRRITATION [None]
